FAERS Safety Report 25372449 (Version 1)
Quarter: 2025Q2

REPORT INFORMATION
  Report Type: Report from Study
  Country: US (occurrence: US)
  Receive Date: 20250529
  Receipt Date: 20250529
  Transmission Date: 20250716
  Serious: Yes (Other)
  Sender: ABBVIE
  Company Number: US-ABBVIE-6300614

PATIENT
  Age: 43 Year
  Sex: Female

DRUGS (1)
  1. VYALEV [Suspect]
     Active Substance: FOSCARBIDOPA\FOSLEVODOPA
     Indication: Parkinson^s disease
     Route: 058
     Dates: start: 20250506

REACTIONS (9)
  - Deep vein thrombosis [Not Recovered/Not Resolved]
  - Catheter site vesicles [Unknown]
  - Administration site erythema [Not Recovered/Not Resolved]
  - Administration site infection [Not Recovered/Not Resolved]
  - Pulmonary embolism [Not Recovered/Not Resolved]
  - Administration site induration [Unknown]
  - Administration site pain [Unknown]
  - Catheter site related reaction [Unknown]
  - Administration site erythema [Not Recovered/Not Resolved]

NARRATIVE: CASE EVENT DATE: 20250501
